FAERS Safety Report 5488984-4 (Version None)
Quarter: 2007Q4

REPORT INFORMATION
  Report Type: 
  Country: None (occurrence: None)
  Receive Date: 20071015
  Receipt Date: 20070626
  Transmission Date: 20080405
  Serious: No
  Sender: FDA-Public Use
  Company Number: 2007SP002363

PATIENT
  Age: 69 Year
  Sex: Female
  Weight: 67.586 kg

DRUGS (8)
  1. LUNESTA [Suspect]
     Indication: INSOMNIA
     Dosage: 3 MG;PRN;ORAL
     Route: 048
     Dates: start: 20070301
  2. DOXEPIN HCL [Concomitant]
  3. ZANTAC [Concomitant]
  4. ASPIRIN [Concomitant]
  5. AVALIDE [Concomitant]
  6. ACIPHEX [Concomitant]
  7. PLAVIX [Concomitant]
  8. VYTORIN [Concomitant]

REACTIONS (1)
  - HEADACHE [None]
